FAERS Safety Report 12330597 (Version 1)
Quarter: 2016Q2

REPORT INFORMATION
  Report Type: Spontaneous
  Country: US (occurrence: None)
  Receive Date: 20160503
  Receipt Date: 20160503
  Transmission Date: 20160815
  Serious: Yes (Death)
  Sender: FDA-Public Use
  Company Number: None

PATIENT
  Age: 70 Year
  Sex: Male
  Weight: 79.6 kg

DRUGS (1)
  1. AMIODARONE [Suspect]
     Active Substance: AMIODARONE
     Route: 048

REACTIONS (5)
  - Cough [None]
  - Pulmonary fibrosis [None]
  - Dyspnoea [None]
  - Pulmonary toxicity [None]
  - Productive cough [None]
